FAERS Safety Report 4317661-8 (Version None)
Quarter: 2004Q1

REPORT INFORMATION
  Report Type: 
  Country: None (occurrence: None)
  Receive Date: 20040315
  Receipt Date: 20040218
  Transmission Date: 20041129
  Serious: Yes (Life-Threatening, Hospitalization)
  Sender: FDA-Public Use
  Company Number: WAES 0402USA01596

PATIENT
  Age: 82 Year
  Sex: Male

DRUGS (12)
  1. ALLOPURINOL [Concomitant]
  2. ASPENON [Suspect]
     Route: 048
     Dates: start: 20030922, end: 20031119
  3. BUFFERIN [Concomitant]
  4. CLARITHROMYCIN [Concomitant]
  5. DIGOXIN [Concomitant]
     Route: 048
     Dates: start: 20030922
  6. HERBESSER [Concomitant]
  7. PEPCID RPD [Suspect]
     Route: 048
     Dates: start: 20030922, end: 20031119
  8. FRANDOL [Concomitant]
  9. MAGNESIUM OXIDE [Concomitant]
  10. NICORANDIL [Concomitant]
  11. LAXOBERON [Concomitant]
  12. PREDONINE [Concomitant]

REACTIONS (3)
  - BODY TEMPERATURE INCREASED [None]
  - HAEMOGLOBIN DECREASED [None]
  - LEUKOPENIA [None]
